FAERS Safety Report 24885459 (Version 7)
Quarter: 2025Q2

REPORT INFORMATION
  Report Type: Spontaneous
  Country: US (occurrence: US)
  Receive Date: 20250124
  Receipt Date: 20250506
  Transmission Date: 20250717
  Serious: Yes (Other)
  Sender: MALLINCKRODT
  Company Number: US-MALLINCKRODT-MNK202500348

PATIENT
  Age: 66 Year
  Sex: Male

DRUGS (1)
  1. CORTICOTROPIN [Suspect]
     Active Substance: CORTICOTROPIN
     Indication: Sarcoidosis
     Route: 058
     Dates: start: 202411

REACTIONS (6)
  - Primary pulmonary melanoma [Not Recovered/Not Resolved]
  - Endodontic procedure [Unknown]
  - Lung neoplasm malignant [Unknown]
  - Lymphadenopathy [Unknown]
  - Pain in extremity [Unknown]
  - Swelling face [Recovering/Resolving]
